FAERS Safety Report 11863477 (Version 1)
Quarter: 2015Q4

REPORT INFORMATION
  Report Type: Spontaneous
  Country: US (occurrence: US)
  Receive Date: 20151223
  Receipt Date: 20151223
  Transmission Date: 20160305
  Serious: Yes (Other)
  Sender: FDA-Public Use
  Company Number: US-BAYER-2015-493481

PATIENT
  Age: 28 Year
  Sex: Female

DRUGS (1)
  1. MIRENA [Suspect]
     Active Substance: LEVONORGESTREL
     Dosage: 20 MCG/24HR, CONT
     Route: 015
     Dates: start: 20100211, end: 20140820

REACTIONS (4)
  - Drug ineffective [None]
  - Pregnancy with contraceptive device [None]
  - Embedded device [None]
  - Device dislocation [None]

NARRATIVE: CASE EVENT DATE: 201310
